FAERS Safety Report 8990584 (Version 1)
Quarter: 2012Q4

REPORT INFORMATION
  Report Type: 
  Country: FR (occurrence: FR)
  Receive Date: 20121228
  Receipt Date: 20121228
  Transmission Date: 20130627
  Serious: Yes (Hospitalization)
  Sender: FDA-Public Use
  Company Number: FR-BRISTOL-MYERS SQUIBB COMPANY-17230582

PATIENT
  Age: 82 Year
  Sex: Female

DRUGS (5)
  1. COUMADIN TABS 2 MG [Suspect]
     Indication: PULMONARY EMBOLISM
     Dosage: 1df: 1.5
     Route: 048
     Dates: start: 20120625, end: 20120830
  2. DEROXAT [Suspect]
     Indication: DEPRESSION
     Dosage: 1DF: 0.5 units NOS
     Route: 048
  3. ZYPREXA [Suspect]
     Indication: DEPRESSION
  4. PARKINANE [Concomitant]
  5. TRANSIPEG [Concomitant]

REACTIONS (3)
  - Fall [Unknown]
  - Subdural haematoma [Not Recovered/Not Resolved]
  - Skin haemorrhage [Recovered/Resolved]
